FAERS Safety Report 14450894 (Version 1)
Quarter: 2018Q1

REPORT INFORMATION
  Report Type: Spontaneous
  Country: US (occurrence: US)
  Receive Date: 20180129
  Receipt Date: 20180129
  Transmission Date: 20180509
  Serious: No
  Sender: FDA-Public Use
  Company Number: US-ABBVIE-17K-163-2180382-00

PATIENT
  Sex: Female

DRUGS (4)
  1. HUMIRA [Suspect]
     Active Substance: ADALIMUMAB
     Indication: FELTY^S SYNDROME
     Route: 058
     Dates: start: 201601, end: 201705
  2. METHOTREXATE. [Suspect]
     Active Substance: METHOTREXATE
     Indication: FELTY^S SYNDROME
     Route: 065
     Dates: start: 201704, end: 201705
  3. ORENCIA [Suspect]
     Active Substance: ABATACEPT
     Indication: FELTY^S SYNDROME
     Route: 065
     Dates: start: 201705, end: 201710
  4. PLAQUENIL [Concomitant]
     Active Substance: HYDROXYCHLOROQUINE SULFATE
     Indication: FELTY^S SYNDROME
     Dates: start: 201710

REACTIONS (3)
  - Drug ineffective [Unknown]
  - Drug ineffective [Unknown]
  - Liver function test abnormal [Unknown]

NARRATIVE: CASE EVENT DATE: 2017
